FAERS Safety Report 5055199-3 (Version None)
Quarter: 2006Q3

REPORT INFORMATION
  Report Type: 
  Country: None (occurrence: None)
  Receive Date: 20060714
  Receipt Date: 20060703
  Transmission Date: 20061208
  Serious: Yes (Hospitalization)
  Sender: FDA-Public Use
  Company Number: HQWYE540903JUL06

PATIENT
  Age: 20 Year
  Sex: Male

DRUGS (5)
  1. AVLOCARDYL (PROPRANOLOL HYDROCHLORIDE, TABLET) [Suspect]
     Dosage: 40 MG 1X PER 1 DAY ORAL
     Route: 048
  2. PARKINES (TRIHEXYPHENIDYL HYDROCHLORIDE, ) [Suspect]
     Dosage: 5 MG 1X PER 1 DAY ORAL
     Route: 048
  3. CLONAZEPAM [Suspect]
     Dosage: 2 MG 1X PER 1 DAY ORAL
     Route: 048
     Dates: end: 20060528
  4. TRIENTINE (TRIENTINE, ) [Suspect]
     Indication: HEPATO-LENTICULAR DEGENERATION
     Dosage: 1500 MG 1X PER 1 DAY ORAL
     Route: 048
     Dates: start: 20051115
  5. VALIUM [Suspect]
     Dosage: 10 MG 1X PER 1 DAY ORAL
     Route: 048

REACTIONS (3)
  - BLOOD CREATINE PHOSPHOKINASE INCREASED [None]
  - BLOOD CREATINE PHOSPHOKINASE MB INCREASED [None]
  - BLOOD CREATININE INCREASED [None]
